FAERS Safety Report 22063406 (Version 1)
Quarter: 2023Q1

REPORT INFORMATION
  Report Type: Spontaneous
  Country: CA (occurrence: CA)
  Receive Date: 20230306
  Receipt Date: 20230306
  Transmission Date: 20230418
  Serious: Yes (Other)
  Sender: FDA-Public Use
  Company Number: CA-002147023-NVSC2023CA045553

PATIENT
  Age: 25 Year
  Sex: Male

DRUGS (8)
  1. METHOTREXATE [Suspect]
     Active Substance: METHOTREXATE
     Indication: Polyarteritis nodosa
     Dosage: 20 MG, QW (1 EVERY 1 WEEKS)
     Route: 048
  2. METHOTREXATE [Suspect]
     Active Substance: METHOTREXATE
     Indication: Granulomatosis with polyangiitis
     Dosage: 20 MG, QW (1 EVERY 1 WEEKS)
     Route: 048
  3. METHOTREXATE [Suspect]
     Active Substance: METHOTREXATE
     Dosage: UNK
     Route: 065
  4. METHOTREXATE [Suspect]
     Active Substance: METHOTREXATE
     Dosage: UNK
     Route: 065
  5. PREDNISONE ACETATE [Concomitant]
     Active Substance: PREDNISONE ACETATE
     Indication: Product used for unknown indication
     Dosage: 50 MG
     Route: 048
  6. PREDNISONE ACETATE [Concomitant]
     Active Substance: PREDNISONE ACETATE
     Dosage: 15 MG, QD (1 EVERY 1 DAYS)
     Route: 065
  7. PREDNISONE ACETATE [Concomitant]
     Active Substance: PREDNISONE ACETATE
     Dosage: 50 MG
     Route: 048
  8. PREDNISONE ACETATE [Concomitant]
     Active Substance: PREDNISONE ACETATE
     Dosage: 75 MG, QD (1 EVERY 1 DAYS)
     Route: 065

REACTIONS (11)
  - Haematochezia [Unknown]
  - Colitis [Unknown]
  - Condition aggravated [Unknown]
  - Diarrhoea [Unknown]
  - Haematuria [Unknown]
  - Orchitis [Unknown]
  - Polyarthritis [Unknown]
  - Pyrexia [Unknown]
  - Vasculitis [Unknown]
  - Off label use [Unknown]
  - Treatment failure [Unknown]
